FAERS Safety Report 11540500 (Version 1)
Quarter: 2015Q3

REPORT INFORMATION
  Report Type: Spontaneous
  Country: US (occurrence: US)
  Receive Date: 20150923
  Receipt Date: 20150923
  Transmission Date: 20151125
  Serious: No
  Sender: FDA-Public Use
  Company Number: US-BEH-2015048427

PATIENT
  Age: 43 Year
  Sex: Female
  Weight: 58 kg

DRUGS (9)
  1. PRIVIGEN [Suspect]
     Active Substance: HUMAN IMMUNOGLOBULIN G
     Indication: CAPILLARY DISORDER
     Dosage: 5 G VIALS (65 G AS DIRECTED) OVER 1-3 HOURS
     Route: 042
     Dates: start: 20150127, end: 20150127
  2. PRIVIGEN [Suspect]
     Active Substance: HUMAN IMMUNOGLOBULIN G
     Dosage: 20G VIALS (65 G AS DIRECTED) OVER 1-3 HOURS
     Route: 042
     Dates: start: 20150127, end: 20150127
  3. DEXTROSE. [Concomitant]
     Active Substance: DEXTROSE
  4. DIPHENHYDRAMINE. [Concomitant]
     Active Substance: DIPHENHYDRAMINE
  5. ZYRTEC [Concomitant]
     Active Substance: CETIRIZINE HYDROCHLORIDE
  6. PRIVIGEN [Suspect]
     Active Substance: HUMAN IMMUNOGLOBULIN G
     Dosage: 10GM VIALS (65 G AS DIRECTED) OVER 1-3 HOURS
     Route: 042
     Dates: start: 20150127, end: 20150127
  7. MULTIVITAMIN [Concomitant]
     Active Substance: VITAMINS
  8. EPIPEN [Concomitant]
     Active Substance: EPINEPHRINE
  9. SODIUM CHLORIDE. [Concomitant]
     Active Substance: SODIUM CHLORIDE

REACTIONS (2)
  - Dermatitis contact [Recovered/Resolved]
  - Infusion site erythema [Recovered/Resolved]

NARRATIVE: CASE EVENT DATE: 20150127
